FAERS Safety Report 11915174 (Version 2)
Quarter: 2016Q1

REPORT INFORMATION
  Report Type: Spontaneous
  Country: US (occurrence: US)
  Receive Date: 20160114
  Receipt Date: 20160222
  Transmission Date: 20160526
  Serious: No
  Sender: FDA-Public Use
  Company Number: US-009507513-1601USA002011

PATIENT
  Age: 24 Year
  Sex: Female
  Weight: 79.37 kg

DRUGS (1)
  1. IMPLANON [Suspect]
     Active Substance: ETONOGESTREL
     Dosage: 1 DF, 1 IMPLANT /3 YEARS, IN HER LEFT ARM
     Route: 030
     Dates: start: 201211, end: 201512

REACTIONS (7)
  - Hypoaesthesia [Not Recovered/Not Resolved]
  - Device difficult to use [Recovered/Resolved]
  - Weight increased [Not Recovered/Not Resolved]
  - Incorrect drug administration duration [Unknown]
  - Incorrect route of drug administration [Unknown]
  - Device deployment issue [Recovered/Resolved]
  - Implant site fibrosis [Unknown]

NARRATIVE: CASE EVENT DATE: 2012
